FAERS Safety Report 9886964 (Version 2)
Quarter: 2014Q1

REPORT INFORMATION
  Report Type: Report from Study
  Country: US (occurrence: US)
  Receive Date: 20140211
  Receipt Date: 20140211
  Transmission Date: 20141002
  Serious: Yes (Other)
  Sender: FDA-Public Use
  Company Number: US-ROCHE-1262446

PATIENT
  Age: 60 Year
  Sex: Female

DRUGS (8)
  1. LUCENTIS [Suspect]
     Indication: MACULAR DEGENERATION
     Dosage: DOSE #9
     Route: 050
  2. LUCENTIS [Suspect]
     Indication: CATARACT
     Dosage: IN 0.1 CC
     Route: 050
  3. LUCENTIS [Suspect]
     Indication: AMBLYOPIA
  4. LUCENTIS [Suspect]
     Indication: AGE-RELATED MACULAR DEGENERATION
  5. DICLOFENAC [Concomitant]
     Route: 065
  6. ASPIRIN [Concomitant]
  7. ENALAPRIL [Concomitant]
  8. PRAVASTATIN [Concomitant]
     Route: 065

REACTIONS (14)
  - Cerebrovascular accident [Unknown]
  - Cataract [Unknown]
  - Amblyopia [Unknown]
  - Hypertension [Unknown]
  - Cardiac disorder [Unknown]
  - Arthritis [Unknown]
  - Hyperlipidaemia [Unknown]
  - Subretinal fibrosis [Unknown]
  - Detachment of retinal pigment epithelium [Unknown]
  - Age-related macular degeneration [Unknown]
  - Retinal neovascularisation [Unknown]
  - Vision blurred [Unknown]
  - Retinal disorder [Unknown]
  - Subretinal fluid [Unknown]
